FAERS Safety Report 24438726 (Version 2)
Quarter: 2024Q4

REPORT INFORMATION
  Report Type: Spontaneous
  Country: CA (occurrence: CA)
  Receive Date: 20241015
  Receipt Date: 20241209
  Transmission Date: 20250114
  Serious: Yes (Other)
  Sender: PFIZER
  Company Number: CA-PFIZER INC-202400264898

PATIENT
  Age: 20 Year
  Sex: Male

DRUGS (3)
  1. RUXIENCE [Suspect]
     Active Substance: RITUXIMAB-PVVR
     Indication: Granulomatosis with polyangiitis
     Dosage: 1 DF
     Route: 042
     Dates: start: 20240924, end: 20240924
  2. RUXIENCE [Suspect]
     Active Substance: RITUXIMAB-PVVR
     Indication: Microscopic polyangiitis
     Dosage: 1000 MG, AFTER 2 WEEKS
     Dates: start: 20241008
  3. RUXIENCE [Suspect]
     Active Substance: RITUXIMAB-PVVR
     Indication: Anti-neutrophil cytoplasmic antibody positive vasculitis

REACTIONS (5)
  - Acute kidney injury [Unknown]
  - Off label use [Unknown]
  - Off label use [Unknown]
  - Intentional product use issue [Unknown]
  - Product preparation issue [Unknown]

NARRATIVE: CASE EVENT DATE: 20240924
